FAERS Safety Report 12767128 (Version 3)
Quarter: 2017Q1

REPORT INFORMATION
  Report Type: Report from Study
  Country: CO (occurrence: CO)
  Receive Date: 20160921
  Receipt Date: 20170308
  Transmission Date: 20170428
  Serious: Yes (Hospitalization, Other)
  Sender: FDA-Public Use
  Company Number: CO-REGENERON PHARMACEUTICALS, INC.-2016-21666

PATIENT

DRUGS (1)
  1. EYLEA [Suspect]
     Active Substance: AFLIBERCEPT
     Indication: AGE-RELATED MACULAR DEGENERATION
     Dosage: 1 DF, Q2MON
     Route: 031
     Dates: start: 20150901

REACTIONS (1)
  - Anorectal operation [Recovered/Resolved]

NARRATIVE: CASE EVENT DATE: 20160911
